FAERS Safety Report 6555907-6 (Version None)
Quarter: 2010Q1

REPORT INFORMATION
  Report Type: 
  Country: None (occurrence: None)
  Receive Date: 20100128
  Receipt Date: 20100118
  Transmission Date: 20100710
  Serious: Yes (Hospitalization)
  Sender: FDA-Public Use
  Company Number: FR-GENENTECH-295800

PATIENT
  Sex: Female

DRUGS (4)
  1. MABTHERA [Suspect]
     Indication: RHEUMATOID ARTHRITIS
     Dosage: UNK
     Route: 042
     Dates: start: 20090201, end: 20090201
  2. METHOTREXATE [Suspect]
     Indication: RHEUMATOID ARTHRITIS
     Dosage: UNK
     Route: 048
     Dates: end: 20091008
  3. PROPOFAN [Suspect]
     Indication: RHEUMATOID ARTHRITIS
     Dosage: UNK
     Route: 048
     Dates: end: 20091008
  4. REMICADE [Concomitant]
     Indication: RHEUMATOID ARTHRITIS
     Dosage: UNK

REACTIONS (1)
  - AGRANULOCYTOSIS [None]
